FAERS Safety Report 24908738 (Version 7)
Quarter: 2025Q4

REPORT INFORMATION
  Report Type: Report from Study
  Country: US (occurrence: US)
  Receive Date: 20250131
  Receipt Date: 20251003
  Transmission Date: 20260118
  Serious: Yes (Other)
  Sender: SUNOVION
  Company Number: US-SUMITOMO PHARMA SWITZERLAND GMBH-2025SPA000899

PATIENT
  Age: 73 Year
  Sex: Male
  Weight: 73.469 kg

DRUGS (2)
  1. ORGOVYX [Suspect]
     Active Substance: RELUGOLIX
     Indication: Prostate cancer
     Dosage: 360 MG
     Route: 048
     Dates: start: 20250111, end: 20250111
  2. ORGOVYX [Suspect]
     Active Substance: RELUGOLIX
     Dosage: 120 MG, QD
     Route: 048
     Dates: start: 20250112

REACTIONS (14)
  - Cataract operation [Unknown]
  - Pollakiuria [Unknown]
  - Dysphonia [Unknown]
  - Nasal congestion [Unknown]
  - Cough [Unknown]
  - Mobility decreased [Unknown]
  - Central obesity [Unknown]
  - Pain in extremity [Unknown]
  - Arthralgia [Unknown]
  - Hyperhidrosis [Unknown]
  - Hot flush [Unknown]
  - Insomnia [Unknown]
  - Fatigue [Unknown]
  - Feeling hot [Unknown]

NARRATIVE: CASE EVENT DATE: 20250321
